FAERS Safety Report 4279451-4 (Version None)
Quarter: 2004Q1

REPORT INFORMATION
  Report Type: 
  Country: None (occurrence: None)
  Receive Date: 20040123
  Receipt Date: 20040108
  Transmission Date: 20041129
  Serious: Yes (Other)
  Sender: FDA-Public Use
  Company Number: IT-SHR-04-019615

PATIENT
  Age: 43 Year
  Sex: Female

DRUGS (1)
  1. ULTRAVIST 300 [Suspect]
     Dates: start: 20031204, end: 20031204

REACTIONS (5)
  - DYSPNOEA [None]
  - FLUSHING [None]
  - PULMONARY OEDEMA [None]
  - RHINITIS [None]
  - URTICARIA [None]
